FAERS Safety Report 8875172 (Version 3)
Quarter: 2013Q2

REPORT INFORMATION
  Report Type: Report from Study
  Country: ES (occurrence: ES)
  Receive Date: 20121023
  Receipt Date: 20130411
  Transmission Date: 20140414
  Serious: Yes (Hospitalization)
  Sender: FDA-Public Use
  Company Number: ES-TEVA-365795ISR

PATIENT
  Age: 72 Year
  Sex: Male

DRUGS (6)
  1. 5-FU [Suspect]
     Indication: METASTATIC GASTRIC CANCER
     Dosage: 800 MG/M2 DAILY; CURRENT CYCLE 1
     Route: 041
     Dates: start: 20120914, end: 20120918
  2. CDDP (CISPLATIN) [Suspect]
     Indication: METASTATIC GASTRIC CANCER
     Dosage: 80 MG/M2 DAILY; CURRENT CYCLE 1
     Route: 041
     Dates: start: 20120914, end: 20120914
  3. ONDA [Concomitant]
     Indication: VOMITING
     Dates: start: 20120923, end: 20120925
  4. METOCLOPRAMIDA [Concomitant]
     Indication: NAUSEA
     Dates: start: 20120923, end: 20121004
  5. FENTANYL [Concomitant]
     Indication: ABDOMINAL PAIN
     Dates: start: 20120923, end: 20121001
  6. FENTANYL [Concomitant]
     Indication: ODYNOPHAGIA

REACTIONS (3)
  - Febrile neutropenia [Recovered/Resolved]
  - Mucosal inflammation [Recovered/Resolved]
  - Diarrhoea [Recovered/Resolved]
